FAERS Safety Report 13967244 (Version 1)
Quarter: 2017Q3

REPORT INFORMATION
  Report Type: Spontaneous
  Country: US (occurrence: US)
  Receive Date: 20170914
  Receipt Date: 20170914
  Transmission Date: 20171128
  Serious: Yes (Hospitalization)
  Sender: FDA-Public Use
  Company Number: None

PATIENT
  Age: 63 Year
  Sex: Female

DRUGS (1)
  1. AFINITOR [Suspect]
     Active Substance: EVEROLIMUS
     Indication: CARCINOID TUMOUR
     Route: 048

REACTIONS (6)
  - Accidental exposure to product [None]
  - Pneumonia [None]
  - Vomiting [None]
  - Muscle twitching [None]
  - Lip swelling [None]
  - Malaise [None]

NARRATIVE: CASE EVENT DATE: 20170907
